FAERS Safety Report 6297248-0 (Version None)
Quarter: 2009Q3

REPORT INFORMATION
  Report Type: 
  Country: None (occurrence: None)
  Receive Date: 20090804
  Receipt Date: 20090804
  Transmission Date: 20100115
  Serious: Yes (Disabling, Other)
  Sender: FDA-Public Use
  Company Number: None

PATIENT
  Age: 42 Year
  Sex: Male
  Weight: 95.2554 kg

DRUGS (1)
  1. ZICAM NASAL GEL [Suspect]
     Indication: NASOPHARYNGITIS
     Dosage: 1 SQUIRT EVERY 4 HRS INTRANASAL
     Route: 045
     Dates: start: 20090509, end: 20090514

REACTIONS (3)
  - AGEUSIA [None]
  - ANOSMIA [None]
  - HYPOGEUSIA [None]
